FAERS Safety Report 25256561 (Version 3)
Quarter: 2025Q3

REPORT INFORMATION
  Report Type: Report from Study
  Country: US (occurrence: US)
  Receive Date: 20250430
  Receipt Date: 20250724
  Transmission Date: 20251021
  Serious: No
  Sender: SUNOVION
  Company Number: US-SUMITOMO PHARMA SWITZERLAND GMBH-2025SPA004218

PATIENT

DRUGS (3)
  1. ORGOVYX [Suspect]
     Active Substance: RELUGOLIX
     Indication: Prostate cancer
     Route: 048
  2. ORGOVYX [Suspect]
     Active Substance: RELUGOLIX
     Dosage: 120 MG, QD
     Route: 048
     Dates: start: 20250310
  3. MAGNESIUM [Suspect]
     Active Substance: MAGNESIUM
     Route: 065

REACTIONS (9)
  - Pollakiuria [Unknown]
  - Cough [Recovered/Resolved]
  - Infection [Unknown]
  - Influenza [Unknown]
  - Blood pressure increased [Recovering/Resolving]
  - Blood glucose increased [Unknown]
  - Diarrhoea [Recovered/Resolved]
  - Constipation [Unknown]
  - Incorrect dose administered [Unknown]
